FAERS Safety Report 21452114 (Version 1)
Quarter: 2022Q4

REPORT INFORMATION
  Report Type: Report from Study
  Country: US (occurrence: US)
  Receive Date: 20221013
  Receipt Date: 20221013
  Transmission Date: 20230113
  Serious: No
  Sender: FDA-Public Use
  Company Number: US-ABBVIE-4152467

PATIENT
  Sex: Female

DRUGS (1)
  1. SKYRIZI [Suspect]
     Active Substance: RISANKIZUMAB-RZAA
     Indication: Product used for unknown indication
     Dosage: FORM STRENGTH: 150 MILLIGRAMS?WEEK 4 THEN EVERY 12 WEEKS
     Route: 058
     Dates: start: 20220622

REACTIONS (4)
  - Carbuncle [Unknown]
  - Suspected COVID-19 [Unknown]
  - Therapeutic product effect incomplete [Unknown]
  - Bronchitis [Unknown]

NARRATIVE: CASE EVENT DATE: 20220101
